FAERS Safety Report 8377785-5 (Version None)
Quarter: 2012Q2

REPORT INFORMATION
  Report Type: 
  Country: None (occurrence: None)
  Receive Date: 20120522
  Receipt Date: 20120518
  Transmission Date: 20120825
  Serious: Yes (Hospitalization)
  Sender: FDA-Public Use
  Company Number: US-PFIZER INC-2012099668

PATIENT
  Sex: Male

DRUGS (5)
  1. RAPAMUNE [Suspect]
     Dosage: 1 MG, DAILY
     Dates: start: 20120201
  2. RAPAMUNE [Suspect]
     Indication: LIVER TRANSPLANT
     Dosage: 1 MG, DAILY
     Route: 048
     Dates: start: 20090901
  3. GLIPIZIDE [Concomitant]
     Indication: DIABETES MELLITUS
     Dosage: 5 MG, DAILY
  4. INSULIN [Concomitant]
     Indication: DIABETES MELLITUS
     Dosage: UNK
  5. CELLCEPT [Concomitant]
     Indication: LIVER TRANSPLANT
     Dosage: UNK

REACTIONS (1)
  - CEREBROVASCULAR ACCIDENT [None]
